FAERS Safety Report 4305245-7 (Version None)
Quarter: 2004Q1

REPORT INFORMATION
  Report Type: 
  Country: None (occurrence: None)
  Receive Date: 20040226
  Receipt Date: 20031118
  Transmission Date: 20041129
  Serious: No
  Sender: FDA-Public Use
  Company Number: US-BRISTOL-MYERS SQUIBB COMPANY-12438859

PATIENT
  Age: 56 Year
  Sex: Female

DRUGS (6)
  1. DEFINITY [Suspect]
     Indication: CARDIAC STRESS TEST
     Dosage: UNSPECIFIED AMOUNT OF DEFINITY MIXED WITH 8 CC SALINE.  SHE RECEIVED 3 CC OF THE MIXTURE.
     Route: 040
     Dates: start: 20031103, end: 20031103
  2. SODIUM CHLORIDE [Suspect]
     Indication: CARDIAC STRESS TEST
     Dosage: 8CC SALINE. RECEIVED 3 CC OF SALINE DEFINITY MIXTURE.
     Route: 042
  3. DIOVAN [Concomitant]
  4. SYNTHROID [Concomitant]
  5. LIPITOR [Concomitant]
  6. OGEN [Concomitant]

REACTIONS (1)
  - RENAL PAIN [None]
